FAERS Safety Report 6519801-9 (Version None)
Quarter: 2009Q4

REPORT INFORMATION
  Report Type: 
  Country: None (occurrence: None)
  Receive Date: 20091228
  Receipt Date: 20091228
  Transmission Date: 20100525
  Serious: Yes (Hospitalization)
  Sender: FDA-Public Use
  Company Number: None

PATIENT
  Sex: Female
  Weight: 103 kg

DRUGS (2)
  1. CISPLATIN [Suspect]
     Dosage: 161 MG
     Dates: end: 20091027
  2. ETOPOSIDE [Suspect]
     Dosage: 642 MG
     Dates: end: 20091029

REACTIONS (2)
  - ELECTROLYTE SUBSTITUTION THERAPY [None]
  - FLUID REPLACEMENT [None]
